FAERS Safety Report 7410128-X (Version None)
Quarter: 2011Q2

REPORT INFORMATION
  Report Type: 
  Country: None (occurrence: None)
  Receive Date: 20110412
  Receipt Date: 20110408
  Transmission Date: 20111010
  Serious: Yes (Other)
  Sender: FDA-Public Use
  Company Number: NL-PFIZER INC-2011070468

PATIENT
  Age: 36 Year
  Sex: Female
  Weight: 70 kg

DRUGS (7)
  1. OMEPRAZOLE [Concomitant]
     Dosage: 40 MG, UNK
     Dates: start: 20090101
  2. LYRICA [Suspect]
     Indication: NEURALGIA
     Dosage: 300 MG, DAILY
     Dates: start: 20091201
  3. PARACETAMOL [Concomitant]
     Dosage: UNK
     Dates: start: 20090101
  4. LYRICA [Suspect]
     Dosage: 75 MG, ALTERNATE DAY
     Dates: start: 20110321
  5. LYRICA [Suspect]
     Dosage: 150 MG, DAILY
  6. LYRICA [Suspect]
     Dosage: 75 MG, DAILY
  7. DICLOFENAC [Concomitant]
     Indication: SURGERY
     Dosage: 50 MG, 3X/DAY
     Dates: start: 20090101

REACTIONS (3)
  - SYNCOPE [None]
  - DISORIENTATION [None]
  - WITHDRAWAL SYNDROME [None]
